FAERS Safety Report 21989638 (Version 3)
Quarter: 2023Q1

REPORT INFORMATION
  Report Type: Report from Study
  Country: US (occurrence: US)
  Receive Date: 20230214
  Receipt Date: 20230314
  Transmission Date: 20230418
  Serious: Yes (Other)
  Sender: FDA-Public Use
  Company Number: US-002147023-NVSC2023US019944

PATIENT
  Age: 62 Year
  Sex: Male
  Weight: 64.9 kg

DRUGS (2)
  1. PIQRAY [Suspect]
     Active Substance: ALPELISIB
     Indication: Squamous cell carcinoma
     Dosage: 250 MG, QD,AM
     Route: 048
     Dates: start: 20230111, end: 20230115
  2. PIQRAY [Suspect]
     Active Substance: ALPELISIB
     Dosage: 250 MG,QD (AM), TOOK ADDITIONAL DOSE IN THE EVENING (PM)
     Route: 048
     Dates: start: 20230116

REACTIONS (1)
  - Overdose [Recovered/Resolved]

NARRATIVE: CASE EVENT DATE: 20230116
